FAERS Safety Report 7298899-7 (Version None)
Quarter: 2011Q1

REPORT INFORMATION
  Report Type: 
  Country: None (occurrence: None)
  Receive Date: 20110217
  Receipt Date: 20110207
  Transmission Date: 20110831
  Serious: Yes (Hospitalization)
  Sender: FDA-Public Use
  Company Number: PHHY2011DE10459

PATIENT
  Sex: Male
  Weight: 3.2 kg

DRUGS (4)
  1. FOLIC ACID [Concomitant]
     Indication: NEURAL TUBE DEFECT
     Dosage: UNK
     Route: 064
  2. DIAZEPAM [Suspect]
     Indication: EPILEPSY
     Dosage: 20 MG, QD
     Route: 064
  3. TEGRETOL [Suspect]
     Indication: EPILEPSY
     Dosage: 200 MG, QD
     Route: 064
  4. KEPPRA [Suspect]
     Indication: EPILEPSY
     Dosage: 500 MG, QD
     Route: 064

REACTIONS (2)
  - DRUG EXPOSURE DURING PREGNANCY [None]
  - NEONATAL RESPIRATORY DISTRESS SYNDROME [None]
